FAERS Safety Report 6256852-6 (Version None)
Quarter: 2009Q3

REPORT INFORMATION
  Report Type: 
  Country: None (occurrence: None)
  Receive Date: 20090706
  Receipt Date: 20090626
  Transmission Date: 20100115
  Serious: Yes (Other)
  Sender: FDA-Public Use
  Company Number: PHEH2009US04543

PATIENT
  Sex: Male
  Weight: 84.807 kg

DRUGS (5)
  1. RECLAST [Suspect]
     Dosage: 5 MG, ONCE PER YEAR
     Dates: start: 20090429, end: 20090429
  2. VALIUM [Concomitant]
     Dosage: UNK, UNK
  3. SEROQUEL [Concomitant]
     Dosage: UNK, UNK
  4. VIAGRA [Concomitant]
     Dosage: UNK, UNK
  5. VICODIN ES [Concomitant]
     Dosage: UNK, UNK

REACTIONS (3)
  - CHILLS [None]
  - DYSPNOEA [None]
  - SYNCOPE [None]
